FAERS Safety Report 6857357-1 (Version None)
Quarter: 2010Q3

REPORT INFORMATION
  Report Type: 
  Country: None (occurrence: None)
  Receive Date: 20100719
  Receipt Date: 20100708
  Transmission Date: 20110219
  Serious: Yes (Hospitalization, Other)
  Sender: FDA-Public Use
  Company Number: FR-AMGEN-US285047

PATIENT
  Sex: Female

DRUGS (7)
  1. ENBREL [Suspect]
     Indication: PRODUCT USED FOR UNKNOWN INDICATION
     Route: 058
     Dates: start: 20071217, end: 20080615
  2. ENBREL [Suspect]
     Route: 058
     Dates: start: 20090701, end: 20100401
  3. DEXAMETHASONE ACETATE [Concomitant]
     Dosage: UNKNOWN
  4. VEXOL [Concomitant]
     Dosage: UNKNOWN
  5. OXYTETRACYCLINE [Concomitant]
     Dosage: UNKNOWN
  6. CORTANCYL [Concomitant]
     Indication: PEMPHIGOID
     Route: 048
  7. VITAMIN A [Concomitant]
     Dosage: UNKNOWN

REACTIONS (3)
  - BASAL CELL CARCINOMA [None]
  - OPTIC NEURITIS [None]
  - SUPERFICIAL SPREADING MELANOMA STAGE UNSPECIFIED [None]
